FAERS Safety Report 15877354 (Version 3)
Quarter: 2020Q1

REPORT INFORMATION
  Report Type: Spontaneous
  Country: US (occurrence: US)
  Receive Date: 20190128
  Receipt Date: 20200129
  Transmission Date: 20200409
  Serious: No
  Sender: FDA-Public Use
  Company Number: US-SA-2019SA020791

PATIENT
  Age: 56 Year
  Sex: Female
  Weight: 94.8 kg

DRUGS (18)
  1. ADDERALL [Concomitant]
     Active Substance: AMPHETAMINE ASPARTATE\AMPHETAMINE SULFATE\DEXTROAMPHETAMINE SACCHARATE\DEXTROAMPHETAMINE SULFATE
  2. AMANTADINE. [Concomitant]
     Active Substance: AMANTADINE HYDROCHLORIDE
  3. AMLODIPINE [Concomitant]
     Active Substance: AMLODIPINE BESYLATE
  4. MIRALAX [Concomitant]
     Active Substance: POLYETHYLENE GLYCOL 3350
  5. PYRIDOXAL 5 PHOSPHATE [Concomitant]
     Active Substance: PYRIDOXAL PHOSPHATE ANHYDROUS
  6. SENNA [SENNA ALEXANDRINA LEAF] [Concomitant]
  7. CLOBETASOL 0.05% [Concomitant]
     Active Substance: CLOBETASOL
  8. TOPAMAX [Concomitant]
     Active Substance: TOPIRAMATE
  9. HYDROQUINONE. [Concomitant]
     Active Substance: HYDROQUINONE
  10. HYDROCODONE BITARTRATE;IBUPROFEN [Concomitant]
  11. ACEBUTOLOL [Concomitant]
     Active Substance: ACEBUTOLOL
  12. AUBAGIO [Suspect]
     Active Substance: TERIFLUNOMIDE
     Indication: MULTIPLE SCLEROSIS
     Dosage: 14 MG, QD
     Route: 048
  13. BACLOFEN. [Concomitant]
     Active Substance: BACLOFEN
  14. CYMBALTA [Concomitant]
     Active Substance: DULOXETINE HYDROCHLORIDE
  15. DIAZEPAM. [Concomitant]
     Active Substance: DIAZEPAM
  16. HYDROCODONE [Concomitant]
     Active Substance: HYDROCODONE
  17. VIVELLE-DOT [Concomitant]
     Active Substance: ESTRADIOL
  18. IBUPROFEN. [Concomitant]
     Active Substance: IBUPROFEN

REACTIONS (10)
  - Diarrhoea [Unknown]
  - Rotator cuff repair [Unknown]
  - Malaise [Unknown]
  - Depression [Unknown]
  - Alopecia [Unknown]
  - Drug ineffective [Unknown]
  - Fatigue [Unknown]
  - Cough [Unknown]
  - Nasopharyngitis [Unknown]
  - Depressed mood [Unknown]

NARRATIVE: CASE EVENT DATE: 20191106
